FAERS Safety Report 4867231-8 (Version None)
Quarter: 2005Q4

REPORT INFORMATION
  Report Type: 
  Country: None (occurrence: None)
  Receive Date: 20051222
  Receipt Date: 20051212
  Transmission Date: 20060501
  Serious: Yes (Hospitalization)
  Sender: FDA-Public Use
  Company Number: 13101

PATIENT
  Age: 26 Year
  Sex: Female
  Weight: 83.6 kg

DRUGS (14)
  1. CYTARABINE [Suspect]
     Indication: ACUTE MYELOID LEUKAEMIA
     Dosage: 1.9 G IV
     Route: 042
     Dates: start: 20050601, end: 20050605
  2. ETOPOSIDE [Suspect]
     Indication: ACUTE MYELOID LEUKAEMIA
     Dosage: 1.91 MG IV
     Route: 042
     Dates: start: 20050601, end: 20050605
  3. MEROPENEM [Concomitant]
  4. SOLU-MEDROL [Concomitant]
  5. VALACYCLOVIR HCL [Concomitant]
  6. MITOXANTRONE [Suspect]
     Indication: ACUTE MYELOID LEUKAEMIA
     Dosage: 15 MG, IV
     Route: 042
     Dates: start: 20050601, end: 20050605
  7. PANTOPRAZOLE [Concomitant]
  8. BENZONATATE [Concomitant]
  9. SEVELAMER [Concomitant]
  10. ALLOPURINOL [Concomitant]
  11. LO/OVRAL [Concomitant]
  12. ONDANSETRON [Concomitant]
  13. DILAUDID [Concomitant]
  14. RENAGEL [Concomitant]

REACTIONS (2)
  - ALANINE AMINOTRANSFERASE INCREASED [None]
  - ASPARTATE AMINOTRANSFERASE INCREASED [None]
